FAERS Safety Report 10492547 (Version 1)
Quarter: 2014Q4

REPORT INFORMATION
  Report Type: Spontaneous
  Country: US (occurrence: US)
  Receive Date: 20141002
  Receipt Date: 20141002
  Transmission Date: 20150528
  Serious: No
  Sender: FDA-Public Use
  Company Number: US-GLAXOSMITHKLINE-A1072460A

PATIENT
  Sex: Female

DRUGS (3)
  1. LORAZEPAM. [Concomitant]
     Active Substance: LORAZEPAM
  2. VITAMINS [Concomitant]
     Active Substance: VITAMINS
  3. ADVAIR HFA [Suspect]
     Active Substance: FLUTICASONE PROPIONATE\SALMETEROL XINAFOATE
     Indication: COUGH
     Dosage: 1PUFF TWICE PER DAY
     Route: 055

REACTIONS (7)
  - Cough [Unknown]
  - Ill-defined disorder [Unknown]
  - Off label use [Unknown]
  - Dyspnoea [Unknown]
  - Tremor [Unknown]
  - Wheezing [Unknown]
  - Insomnia [Unknown]
